FAERS Safety Report 19681910 (Version 1)
Quarter: 2021Q3

REPORT INFORMATION
  Report Type: Report from Study
  Country: US (occurrence: US)
  Receive Date: 20210810
  Receipt Date: 20210810
  Transmission Date: 20211014
  Serious: Yes (Death, Other)
  Sender: FDA-Public Use
  Company Number: US-TAKEDA-US202000522

PATIENT
  Age: 68 Year
  Sex: Female

DRUGS (12)
  1. TEDUGLUTIDE [Suspect]
     Active Substance: TEDUGLUTIDE
     Indication: MALABSORPTION
     Dosage: 3.32 MILLIGRAM, QD
     Route: 058
     Dates: start: 20210526
  2. TEDUGLUTIDE [Suspect]
     Active Substance: TEDUGLUTIDE
     Indication: MALABSORPTION
     Dosage: 3.32 MILLIGRAM, QD
     Route: 058
     Dates: start: 20210526
  3. TEDUGLUTIDE [Suspect]
     Active Substance: TEDUGLUTIDE
     Indication: GASTROINTESTINAL DISORDER
  4. TEDUGLUTIDE [Suspect]
     Active Substance: TEDUGLUTIDE
     Indication: GASTROINTESTINAL DISORDER
  5. TEDUGLUTIDE [Suspect]
     Active Substance: TEDUGLUTIDE
     Indication: SHORT-BOWEL SYNDROME
     Dosage: 3.32 MILLIGRAM, QD
     Route: 042
     Dates: start: 20191109
  6. TEDUGLUTIDE [Suspect]
     Active Substance: TEDUGLUTIDE
     Indication: GASTROINTESTINAL DISORDER
  7. TEDUGLUTIDE [Suspect]
     Active Substance: TEDUGLUTIDE
     Indication: SHORT-BOWEL SYNDROME
     Dosage: 3.32 MILLIGRAM, QD
     Route: 042
     Dates: start: 20191109
  8. TEDUGLUTIDE [Suspect]
     Active Substance: TEDUGLUTIDE
     Indication: SHORT-BOWEL SYNDROME
     Dosage: 3.32 MILLIGRAM, QD
     Route: 042
     Dates: start: 20191109
  9. TEDUGLUTIDE [Suspect]
     Active Substance: TEDUGLUTIDE
     Indication: MALABSORPTION
     Dosage: 3.32 MILLIGRAM, QD
     Route: 058
     Dates: start: 20210526
  10. TEDUGLUTIDE [Suspect]
     Active Substance: TEDUGLUTIDE
     Indication: SHORT-BOWEL SYNDROME
     Dosage: 3.32 MILLIGRAM, QD
     Route: 042
     Dates: start: 20191109
  11. TEDUGLUTIDE [Suspect]
     Active Substance: TEDUGLUTIDE
     Indication: MALABSORPTION
     Dosage: 3.32 MILLIGRAM, QD
     Route: 058
     Dates: start: 20210526
  12. TEDUGLUTIDE [Suspect]
     Active Substance: TEDUGLUTIDE
     Indication: GASTROINTESTINAL DISORDER

REACTIONS (5)
  - Peripheral swelling [Unknown]
  - Intentional product use issue [Unknown]
  - Vomiting [Unknown]
  - Death [Fatal]
  - Chills [Unknown]

NARRATIVE: CASE EVENT DATE: 20191217
